FAERS Safety Report 6801886-3 (Version None)
Quarter: 2010Q2

REPORT INFORMATION
  Report Type: 
  Country: None (occurrence: None)
  Receive Date: 20100629
  Receipt Date: 20100628
  Transmission Date: 20101027
  Serious: Yes (Hospitalization, Other)
  Sender: FDA-Public Use
  Company Number: US-ROXANE LABORATORIES, INC.-2010-RO-00560RO

PATIENT
  Sex: Female
  Weight: 53 kg

DRUGS (25)
  1. PREDNISONE [Suspect]
     Dosage: 100 MG
     Route: 048
     Dates: start: 20100421
  2. ALPRAZOLAM [Suspect]
     Dates: start: 20050401
  3. ROXICET [Suspect]
     Dates: start: 20100101
  4. RITUXAN [Suspect]
     Route: 042
     Dates: start: 20100421, end: 20100421
  5. VINCRISTINE [Suspect]
     Route: 042
     Dates: start: 20100421
  6. CYTOXAN [Suspect]
     Dosage: 1150 MG
     Route: 042
     Dates: start: 20100421, end: 20100421
  7. BENADRYL [Suspect]
     Indication: PREMEDICATION
  8. BENADRYL [Suspect]
     Indication: INFUSION RELATED REACTION
     Route: 042
  9. BENADRYL [Suspect]
     Dates: start: 20100421, end: 20100421
  10. SOLU-MEDROL [Suspect]
     Indication: PREMEDICATION
     Dates: start: 20100421
  11. SOLU-MEDROL [Suspect]
     Indication: INFUSION RELATED REACTION
     Route: 042
  12. ZOFRAN [Suspect]
     Indication: PREMEDICATION
     Dates: start: 20100421
  13. ACETAMINOPHEN [Suspect]
     Indication: PREMEDICATION
  14. TOPROL-XL [Concomitant]
     Dates: start: 19920101
  15. FERREX [Concomitant]
     Dates: start: 20100101
  16. XANAX [Concomitant]
     Dates: start: 20020101
  17. ALBUTEROL SULATE [Concomitant]
     Dates: start: 20100101
  18. KAPIDEX [Concomitant]
     Dates: start: 20100101
  19. CHANTIX [Concomitant]
     Dates: start: 20100201
  20. PROVENTIL [Concomitant]
     Dates: start: 20100201
  21. ALLOPURINOL [Concomitant]
     Dates: start: 20100421
  22. CALCIUM WITH VITAMIN D [Concomitant]
     Dates: start: 20050101
  23. COMPAZINE [Concomitant]
     Dates: start: 20100421
  24. MOTRIN [Concomitant]
     Dates: start: 20100120
  25. NEXIUM [Concomitant]

REACTIONS (2)
  - HAEMOGLOBIN DECREASED [None]
  - INFUSION RELATED REACTION [None]
